FAERS Safety Report 19169068 (Version 1)
Quarter: 2021Q2

REPORT INFORMATION
  Report Type: Spontaneous
  Country: GB (occurrence: GB)
  Receive Date: 20210422
  Receipt Date: 20210422
  Transmission Date: 20210717
  Serious: Yes (Hospitalization)
  Sender: FDA-Public Use
  Company Number: GB-MYLANLABS-2021M1023239

PATIENT
  Age: 72 Year
  Sex: Female

DRUGS (11)
  1. BISACODYL. [Concomitant]
     Active Substance: BISACODYL
     Dosage: NIGHTLY
  2. TRAMADOL. [Concomitant]
     Active Substance: TRAMADOL
     Dosage: 2 THREE TIMES A DAY IF REQUIRED
  3. CLOBETASOL [Concomitant]
     Active Substance: CLOBETASOL
     Dosage: APPLY 1?2 TIMES/DAY. 500MICROGRAMS/G
  4. LANSOPRAZOLE. [Concomitant]
     Active Substance: LANSOPRAZOLE
  5. HYDROXYCHLOROQUINE [Suspect]
     Active Substance: HYDROXYCHLOROQUINE
     Indication: PRODUCT USED FOR UNKNOWN INDICATION
     Dosage: 200 MILLIGRAM, BID
  6. PERINDOPRIL ERBUMINE. [Concomitant]
     Active Substance: PERINDOPRIL ERBUMINE
     Dosage: 8 MILLIGRAM, QD
  7. EXOREX [Concomitant]
     Active Substance: COAL TAR
     Dosage: APPLY TO SKIN OR SCALP TWO TO THREE TIMES DAILY
  8. BETAMETHASONE W/CALCIPOTRIOL [Concomitant]
     Active Substance: BETAMETHASONE DIPROPIONATE\CALCIPOTRIENE HYDRATE
     Dosage: 500MICROGRAMS/G/50MICROGRAMS/G
  9. GABAPENTIN. [Suspect]
     Active Substance: GABAPENTIN
     Indication: PRODUCT USED FOR UNKNOWN INDICATION
     Dosage: 600 MILLIGRAM, TID
  10. ADCAL D3 [Concomitant]
     Active Substance: CALCIUM CARBONATE\CHOLECALCIFEROL
     Dosage: PREFERABLY ONE TABLET EACH MORNING AND EVENING
  11. CAPASAL [Concomitant]

REACTIONS (1)
  - Electrocardiogram QT prolonged [Recovered/Resolved]
